FAERS Safety Report 20351928 (Version 1)
Quarter: 2022Q1

REPORT INFORMATION
  Report Type: Spontaneous
  Country: JP (occurrence: JP)
  Receive Date: 20220119
  Receipt Date: 20220119
  Transmission Date: 20220423
  Serious: Yes (Hospitalization)
  Sender: FDA-Public Use
  Company Number: JP-Eisai-202110194_HAL_P_1

PATIENT
  Sex: Female

DRUGS (2)
  1. HALAVEN [Suspect]
     Active Substance: ERIBULIN MESYLATE
     Indication: Breast cancer
     Dosage: DOSE UNKNOWN
     Route: 042
  2. HERCEPTIN [Concomitant]
     Active Substance: TRASTUZUMAB
     Indication: Breast cancer
     Dosage: DOSE AND FREQUENCY UNKNOWN
     Route: 065

REACTIONS (1)
  - Fatigue [Unknown]
